FAERS Safety Report 13614902 (Version 1)
Quarter: 2017Q2

REPORT INFORMATION
  Report Type: Spontaneous
  Country: TR (occurrence: TR)
  Receive Date: 20170606
  Receipt Date: 20170606
  Transmission Date: 20170830
  Serious: Yes (Death, Life-Threatening, Hospitalization, Other)
  Sender: FDA-Public Use
  Company Number: TR-MACLEODS PHARMACEUTICALS US LTD-MAC2017005132

PATIENT

DRUGS (2)
  1. SILDENAFIL. [Suspect]
     Active Substance: SILDENAFIL
     Indication: SEXUAL ACTIVITY INCREASED
     Dosage: UNK, ONCE OR TWICE A MONTH
     Route: 065
  2. SILDENAFIL. [Suspect]
     Active Substance: SILDENAFIL
     Dosage: 100 MG, UNK
     Route: 065

REACTIONS (9)
  - Headache [Recovered/Resolved]
  - Cardiac arrest [Fatal]
  - Status epilepticus [Recovered/Resolved]
  - Pulmonary embolism [Recovering/Resolving]
  - Dyspnoea [Recovering/Resolving]
  - Intracranial artery dissection [Unknown]
  - Subarachnoid haemorrhage [Recovered/Resolved]
  - Hemiplegia [Recovered/Resolved]
  - Hemiparesis [Recovered/Resolved]
